FAERS Safety Report 20310130 (Version 7)
Quarter: 2022Q3

REPORT INFORMATION
  Report Type: Report from Study
  Country: CL (occurrence: None)
  Receive Date: 20220107
  Receipt Date: 20220915
  Transmission Date: 20221026
  Serious: Yes (Death, Hospitalization)
  Sender: FDA-Public Use
  Company Number: CL-Eisai Medical Research-EC-2022-106394

PATIENT
  Age: 82 Year
  Sex: Female
  Weight: 48.9 kg

DRUGS (27)
  1. LENVATINIB [Suspect]
     Active Substance: LENVATINIB
     Indication: Non-small cell lung cancer metastatic
     Route: 048
     Dates: start: 20210105, end: 20211217
  2. LENVATINIB [Suspect]
     Active Substance: LENVATINIB
     Indication: Non-small cell lung cancer
  3. PEMBROLIZUMAB [Suspect]
     Active Substance: PEMBROLIZUMAB
     Indication: Non-small cell lung cancer metastatic
     Route: 041
     Dates: start: 20210105, end: 20210504
  4. PEMBROLIZUMAB [Suspect]
     Active Substance: PEMBROLIZUMAB
     Indication: Non-small cell lung cancer
     Route: 041
     Dates: start: 20210525, end: 20210525
  5. PEMETREXED [Suspect]
     Active Substance: PEMETREXED
     Indication: Non-small cell lung cancer metastatic
     Route: 042
     Dates: start: 20210105, end: 20211022
  6. PEMETREXED [Suspect]
     Active Substance: PEMETREXED
     Indication: Non-small cell lung cancer
     Route: 042
     Dates: start: 20211217, end: 20211217
  7. CARBOPLATIN [Suspect]
     Active Substance: CARBOPLATIN
     Indication: Non-small cell lung cancer metastatic
     Dosage: (AUC) 5 MG/ML/MIN
     Route: 042
     Dates: start: 20210105, end: 20210223
  8. CARBOPLATIN [Suspect]
     Active Substance: CARBOPLATIN
     Indication: Non-small cell lung cancer
     Dosage: (AUC) 5 MG/ML/MIN
     Route: 042
     Dates: start: 20210316, end: 20210316
  9. PREGABALIN [Concomitant]
     Active Substance: PREGABALIN
     Dates: start: 201801
  10. DULOXETINE HYDROCHLORIDE [Concomitant]
     Active Substance: DULOXETINE HYDROCHLORIDE
     Dates: start: 201801
  11. UREA [Concomitant]
     Active Substance: UREA
     Dates: start: 20210215
  12. TELMISARTAN [Concomitant]
     Active Substance: TELMISARTAN
     Dates: start: 20210525
  13. LANSOPRAZOLE [Concomitant]
     Active Substance: LANSOPRAZOLE
     Dates: start: 20210625
  14. HYDROCORTISONE [Concomitant]
     Active Substance: HYDROCORTISONE
     Dates: start: 20210708
  15. CARVEDILOL [Concomitant]
     Active Substance: CARVEDILOL
     Dates: start: 20210930
  16. AMLODIPINE [Concomitant]
     Active Substance: AMLODIPINE BESYLATE
     Dates: start: 20211021
  17. LOPERAMIDE [Concomitant]
     Active Substance: LOPERAMIDE
     Dates: start: 20211021
  18. PARGEVERINE [Concomitant]
     Active Substance: PARGEVERINE
     Dates: start: 20211022
  19. ASPIRIN [Concomitant]
     Active Substance: ASPIRIN
     Dates: start: 201801
  20. ATORVASTATIN [Concomitant]
     Active Substance: ATORVASTATIN
     Dates: start: 202001
  21. ACENOCOUMAROL [Concomitant]
     Active Substance: ACENOCOUMAROL
     Dates: start: 20200905
  22. SODIUM CHLORIDE [Concomitant]
     Active Substance: SODIUM CHLORIDE
     Dates: start: 20211223, end: 20211223
  23. OMEPRAZOLE [Concomitant]
     Active Substance: OMEPRAZOLE
     Dates: start: 20211223, end: 20211223
  24. ACETAMINOPHEN [Concomitant]
     Active Substance: ACETAMINOPHEN
     Dates: start: 20211223, end: 20211223
  25. PROBIOTICS NOS [Concomitant]
     Active Substance: PROBIOTICS NOS
     Dates: start: 20211027
  26. AMIODARONE [Concomitant]
     Active Substance: AMIODARONE
     Dates: start: 20211026
  27. RIVAROXABAN [Concomitant]
     Active Substance: RIVAROXABAN
     Dates: start: 20211026

REACTIONS (1)
  - Pneumonitis [Fatal]

NARRATIVE: CASE EVENT DATE: 20211229
